FAERS Safety Report 17817052 (Version 1)
Quarter: 2020Q2

REPORT INFORMATION
  Report Type: Report from Study
  Country: US (occurrence: US)
  Receive Date: 20200522
  Receipt Date: 20200522
  Transmission Date: 20200714
  Serious: Yes (Hospitalization)
  Sender: FDA-Public Use
  Company Number: US-TEVA-2019-US-1027712

PATIENT
  Sex: Female

DRUGS (2)
  1. CLOZAPINE TEVA [Suspect]
     Active Substance: CLOZAPINE
     Route: 048
  2. FLUOROURACIL. [Suspect]
     Active Substance: FLUOROURACIL
     Indication: ANAL CANCER
     Dosage: HIGH DOSE
     Route: 065

REACTIONS (7)
  - Neutrophil count decreased [Recovering/Resolving]
  - Hospitalisation [Unknown]
  - Red blood cell count decreased [Recovering/Resolving]
  - Intestinal obstruction [Recovered/Resolved]
  - White blood cell count decreased [Recovering/Resolving]
  - Haemoglobin decreased [Recovering/Resolving]
  - Haematocrit decreased [Recovering/Resolving]
